FAERS Safety Report 8091856-2 (Version None)
Quarter: 2012Q1

REPORT INFORMATION
  Report Type: 
  Country: None (occurrence: None)
  Receive Date: 20120129
  Receipt Date: 20111206
  Transmission Date: 20120608
  Serious: No
  Sender: FDA-Public Use
  Company Number: US-ABBOTT-11P-163-0881125-00

PATIENT
  Age: 63 Year
  Sex: Female

DRUGS (12)
  1. PREDNISONE TAB [Concomitant]
     Indication: PRODUCT USED FOR UNKNOWN INDICATION
     Dosage: WEANING DOWN 1MG A MONTH
  2. ATENOLOL [Concomitant]
     Indication: HYPERTENSION
  3. PHENERGAN [Concomitant]
     Indication: NAUSEA
  4. RECLAST [Concomitant]
     Indication: OSTEOPENIA
     Dosage: INFUSION ANNUALLY
  5. BENTYL [Concomitant]
  6. SIMVASTATIN [Concomitant]
     Indication: BLOOD CHOLESTEROL INCREASED
  7. DIAZEPAM [Concomitant]
     Indication: MUSCLE SPASMS
  8. HUMIRA [Suspect]
     Indication: ANKYLOSING SPONDYLITIS
     Dosage: INITIAL DOSE
     Dates: start: 20111201
  9. PRILOSEC [Concomitant]
     Indication: GASTROOESOPHAGEAL REFLUX DISEASE
  10. HYDROCHLOROTHIAZIDE [Concomitant]
     Indication: HYPERTENSION
  11. BENTYL [Concomitant]
     Indication: ABDOMINAL PAIN
  12. HYDROMORPHONE HCL [Concomitant]
     Indication: PAIN

REACTIONS (1)
  - INJECTION SITE HAEMORRHAGE [None]
